FAERS Safety Report 13301965 (Version 1)
Quarter: 2017Q1

REPORT INFORMATION
  Report Type: Spontaneous
  Country: MX (occurrence: MX)
  Receive Date: 20170307
  Receipt Date: 20170307
  Transmission Date: 20170428
  Serious: Yes (Death, Hospitalization)
  Sender: FDA-Public Use
  Company Number: MX-HQ SPECIALTY-MX-2017INT000051

PATIENT
  Age: 23 Year
  Sex: Male

DRUGS (2)
  1. CISPLATIN. [Suspect]
     Active Substance: CISPLATIN
     Indication: TESTICULAR CHORIOCARCINOMA STAGE III
     Dosage: 20 MG/M2, DAYS 1-5
  2. ETOPOSIDE. [Suspect]
     Active Substance: ETOPOSIDE
     Indication: TESTICULAR CHORIOCARCINOMA STAGE III
     Dosage: 100 MG/M2, DAYS 1-5

REACTIONS (3)
  - Testicular choriocarcinoma stage III [Fatal]
  - Pulmonary haemorrhage [Unknown]
  - Respiratory depression [Unknown]
